FAERS Safety Report 17465149 (Version 1)
Quarter: 2020Q1

REPORT INFORMATION
  Report Type: Spontaneous
  Country: US (occurrence: US)
  Receive Date: 20200227
  Receipt Date: 20200227
  Transmission Date: 20200409
  Serious: Yes (Other)
  Sender: FDA-Public Use
  Company Number: US-LUPIN HEALTHCARE (UK) LIMITED-2020-00848

PATIENT
  Age: 46 Year
  Sex: Male

DRUGS (1)
  1. CEPHALEXIN. [Suspect]
     Active Substance: CEPHALEXIN
     Indication: INJURY
     Dosage: UNK
     Route: 065

REACTIONS (6)
  - Depression [Recovered/Resolved]
  - Amnesia [Recovered/Resolved]
  - Dysbiosis [Recovered/Resolved]
  - Mental disorder [Recovered/Resolved]
  - Candida infection [Recovered/Resolved]
  - Gut fermentation syndrome [Recovered/Resolved]
